FAERS Safety Report 9813075 (Version 2)
Quarter: 2014Q1

REPORT INFORMATION
  Report Type: Spontaneous
  Country: US (occurrence: US)
  Receive Date: 20140113
  Receipt Date: 20140117
  Transmission Date: 20141002
  Serious: Yes (Death)
  Sender: FDA-Public Use
  Company Number: US-009507513-1401USA001223

PATIENT
  Age: 75 Year
  Sex: Female

DRUGS (3)
  1. METHYLPREDNISOLONE SODIUM SUCCINATE [Suspect]
     Indication: INTERSTITIAL LUNG DISEASE
     Dosage: 2 MG/KG, UNK
  2. AMIODARONE [Concomitant]
  3. WARFARIN [Concomitant]

REACTIONS (2)
  - Gastrointestinal haemorrhage [Fatal]
  - Zygomycosis [Fatal]
